FAERS Safety Report 25929054 (Version 1)
Quarter: 2025Q4

REPORT INFORMATION
  Report Type: Spontaneous
  Country: EU (occurrence: EU)
  Receive Date: 20251016
  Receipt Date: 20251016
  Transmission Date: 20260117
  Serious: Yes (Hospitalization)
  Sender: ACCORD
  Company Number: None

PATIENT
  Age: 65 Year
  Sex: Male
  Weight: 95.4 kg

DRUGS (1)
  1. DOCETAXEL [Suspect]
     Active Substance: DOCETAXEL
     Indication: Prostate cancer
     Dates: start: 20250728

REACTIONS (1)
  - Toxic erythema of chemotherapy [Recovering/Resolving]

NARRATIVE: CASE EVENT DATE: 20250731
